FAERS Safety Report 16503923 (Version 3)
Quarter: 2019Q3

REPORT INFORMATION
  Report Type: Spontaneous
  Country: US (occurrence: US)
  Receive Date: 20190701
  Receipt Date: 20190910
  Transmission Date: 20191004
  Serious: No
  Sender: FDA-Public Use
  Company Number: US-BIOGEN-2019BI00756710

PATIENT
  Age: 50 Year
  Sex: Female

DRUGS (1)
  1. TYSABRI [Suspect]
     Active Substance: NATALIZUMAB
     Indication: MULTIPLE SCLEROSIS
     Dosage: INFUSED OVER 1 HOUR
     Route: 065
     Dates: start: 20180419, end: 201906

REACTIONS (9)
  - Stress [Unknown]
  - Memory impairment [Unknown]
  - Temporomandibular joint syndrome [Unknown]
  - Pharyngeal hypoaesthesia [Not Recovered/Not Resolved]
  - Headache [Unknown]
  - Decreased appetite [Unknown]
  - Hypoaesthesia oral [Not Recovered/Not Resolved]
  - Anxiety [Unknown]
  - Hypoaesthesia [Not Recovered/Not Resolved]

NARRATIVE: CASE EVENT DATE: 20190601
